FAERS Safety Report 4324671-3 (Version None)
Quarter: 2004Q1

REPORT INFORMATION
  Report Type: 
  Country: None (occurrence: None)
  Receive Date: 20040323
  Receipt Date: 20040310
  Transmission Date: 20041129
  Serious: Yes (Life-Threatening, Hospitalization, Other)
  Sender: FDA-Public Use
  Company Number: 54756/423

PATIENT
  Age: 28 Year
  Sex: Female

DRUGS (6)
  1. LEVONORGESTREL [Suspect]
     Indication: POST COITAL CONTRACEPTION
     Dosage: 1 TAB(S), 2X/DAY, ORAL
     Route: 048
     Dates: start: 20021209, end: 20021210
  2. BETNOVATE (BETAMETHASONE) [Concomitant]
  3. EMULSIDERM (ENZALKOMIUM CHLORIDE, PARAFFIN, LIQUID, ISOPROPYL MYRISTAT [Concomitant]
  4. OXYTETRACYCLINE (OXYTETRACYCLINE) [Concomitant]
  5. MOMETASONE (MOMETASONE) [Concomitant]
  6. FUCIBET (BETAMETHASONE VALERATE) [Concomitant]

REACTIONS (4)
  - ABDOMINAL PAIN [None]
  - ECTOPIC PREGNANCY [None]
  - HAEMORRHAGE [None]
  - PREGNANCY ON ORAL CONTRACEPTIVE [None]
